FAERS Safety Report 6366967-X (Version None)
Quarter: 2009Q3

REPORT INFORMATION
  Report Type: 
  Country: None (occurrence: None)
  Receive Date: 20090921
  Receipt Date: 20090910
  Transmission Date: 20100115
  Serious: Yes (Death, Hospitalization, Disabling, Other)
  Sender: FDA-Public Use
  Company Number: JP-JNJFOC-20090703469

PATIENT
  Sex: Female
  Weight: 48 kg

DRUGS (4)
  1. DOXORUBICIN HCL [Suspect]
     Indication: OVARIAN CANCER RECURRENT
     Dosage: CYCLE 1
     Route: 042
  2. PURSENNID [Concomitant]
     Route: 048
  3. KAMAG G [Concomitant]
     Route: 048
  4. LOXONIN [Concomitant]
     Route: 048

REACTIONS (8)
  - ASTHMA [None]
  - BRONCHITIS [None]
  - CYANOSIS [None]
  - HAEMOGLOBIN DECREASED [None]
  - LUNG ABSCESS [None]
  - OVARIAN CANCER [None]
  - PNEUMONIA [None]
  - WHITE BLOOD CELL COUNT DECREASED [None]
